FAERS Safety Report 6511311-8 (Version None)
Quarter: 2009Q4

REPORT INFORMATION
  Report Type: 
  Country: None (occurrence: None)
  Receive Date: 20091222
  Receipt Date: 20090609
  Transmission Date: 20100525
  Serious: No
  Sender: FDA-Public Use
  Company Number: US-ASTRAZENECA-2009UW07773

PATIENT
  Age: 65 Year
  Sex: Female
  Weight: 86.2 kg

DRUGS (8)
  1. CRESTOR [Suspect]
     Indication: BLOOD CHOLESTEROL INCREASED
     Route: 048
     Dates: start: 20071212, end: 20090324
  2. CRESTOR [Suspect]
     Indication: LIPIDS ABNORMAL
     Route: 048
     Dates: start: 20071212, end: 20090324
  3. CRESTOR [Suspect]
     Route: 048
     Dates: start: 20090324, end: 20090325
  4. CRESTOR [Suspect]
     Route: 048
     Dates: start: 20090324, end: 20090325
  5. HYDROCHLOROTHIAZIDE [Concomitant]
  6. LEXAPRO [Concomitant]
  7. MULTI-VITAMINS [Concomitant]
  8. CALCIUM [Concomitant]

REACTIONS (1)
  - ORAL PAIN [None]
